FAERS Safety Report 15892304 (Version 1)
Quarter: 2019Q1

REPORT INFORMATION
  Report Type: Report from Study
  Country: US (occurrence: US)
  Receive Date: 20190130
  Receipt Date: 20190130
  Transmission Date: 20190417
  Serious: Yes (Hospitalization)
  Sender: FDA-Public Use
  Company Number: US-BIOGEN-2019BI00689283

PATIENT
  Sex: Female

DRUGS (1)
  1. TYSABRI [Suspect]
     Active Substance: NATALIZUMAB
     Indication: MULTIPLE SCLEROSIS
     Route: 065
     Dates: start: 20120727, end: 20171128

REACTIONS (5)
  - Catheter site infection [Unknown]
  - Amnesia [Unknown]
  - Urinary tract infection [Unknown]
  - Mobility decreased [Unknown]
  - Osteomyelitis [Unknown]
